FAERS Safety Report 9164707 (Version 3)
Quarter: 2013Q2

REPORT INFORMATION
  Report Type: Spontaneous
  Country: DE (occurrence: DE)
  Receive Date: 20130315
  Receipt Date: 20130516
  Transmission Date: 20140414
  Serious: Yes (Death, Hospitalization, Other)
  Sender: FDA-Public Use
  Company Number: DE-TEVA-390637GER

PATIENT
  Sex: Male

DRUGS (18)
  1. DOXORUBICIN [Suspect]
     Indication: B-CELL LYMPHOMA
     Dosage: 90 MILLIGRAM DAILY; 4X FOR 47 DAYS
     Route: 042
     Dates: start: 20121126, end: 20130111
  2. PREDNISONE [Suspect]
     Indication: B-CELL LYMPHOMA
     Dosage: 100 MILLIGRAM DAILY; 37X FOR 58 DAYS
     Route: 048
     Dates: start: 20121115, end: 20130111
  3. PREDNISONE [Suspect]
     Dosage: 50 MILLIGRAM DAILY;
  4. VINCRISTINE [Suspect]
     Indication: B-CELL LYMPHOMA
     Dosage: 3.58 MILLIGRAM DAILY; 4X FOR 46 DAYS
     Route: 042
     Dates: start: 20121127, end: 20130111
  5. CYCLOPHOSPHAMIDE [Suspect]
     Indication: B-CELL LYMPHOMA
     Dosage: 1350 MILLIGRAM DAILY; 4X FOR 47 DAYS
     Route: 042
     Dates: start: 20121126, end: 20130112
  6. RITUXIMAB [Suspect]
     Indication: B-CELL LYMPHOMA
     Dosage: 675 MILLIGRAM DAILY; 7X FOR 53 DAYS
     Route: 042
     Dates: start: 20121120, end: 20130111
  7. PEGFILGRASTIM [Suspect]
     Indication: B-CELL LYMPHOMA
     Dosage: 6 MILLIGRAM DAILY; 4X FOR 44 DAYS
     Route: 058
     Dates: start: 20121129, end: 20130115
  8. VORICONAZOLE [Concomitant]
     Indication: PNEUMONIA FUNGAL
     Dosage: 400 MILLIGRAM DAILY;
     Route: 048
  9. DIGITOXIN [Concomitant]
     Indication: ATRIAL FIBRILLATION
     Dosage: .07 MILLIGRAM DAILY;
     Route: 048
  10. SULFAMETHOXAZOLE /TRIMETHOPRIM [Concomitant]
     Indication: PROPHYLAXIS
     Dosage: 1920 MILLIGRAM DAILY;
     Dates: start: 20121120, end: 20130318
  11. DIGITOXIN [Concomitant]
     Indication: ATRIAL FIBRILLATION
     Dosage: .7 MILLIGRAM DAILY;
     Route: 048
     Dates: start: 20130204, end: 20130318
  12. ACICLOVIR [Concomitant]
     Dosage: 1600 MILLIGRAM DAILY;
     Route: 048
     Dates: start: 20121120, end: 20130318
  13. METAMIZOLE [Concomitant]
     Dosage: 1500 MILLIGRAM DAILY;
  14. PANTOPRAZOLE [Concomitant]
     Dosage: 40 MILLIGRAM DAILY;
  15. BALDRIAN [Concomitant]
  16. SODIUM CHLORIDE TABLETS [Concomitant]
  17. MCP DROPS [Concomitant]
  18. CERTOPARIN [Concomitant]
     Dosage: 3000 IU (INTERNATIONAL UNIT) DAILY;
     Route: 058

REACTIONS (7)
  - Death [Fatal]
  - Facial paresis [Recovered/Resolved with Sequelae]
  - Paresis cranial nerve [Recovered/Resolved with Sequelae]
  - Hyponatraemia [Unknown]
  - Back pain [Unknown]
  - Immunodeficiency [Unknown]
  - Non-Hodgkin^s lymphoma [Unknown]
